FAERS Safety Report 11150606 (Version 1)
Quarter: 2015Q2

REPORT INFORMATION
  Report Type: Spontaneous
  Country: IE (occurrence: IE)
  Receive Date: 20150601
  Receipt Date: 20150601
  Transmission Date: 20150821
  Serious: Yes (Other)
  Sender: FDA-Public Use
  Company Number: PHHY2015IE063810

PATIENT
  Age: 64 Year
  Sex: Male

DRUGS (1)
  1. WARFARIN [Suspect]
     Active Substance: WARFARIN
     Indication: CARDIAC VALVE REPLACEMENT COMPLICATION
     Route: 065

REACTIONS (3)
  - Fat necrosis [Unknown]
  - Haematoma [Recovered/Resolved]
  - Skin necrosis [Recovered/Resolved]
